FAERS Safety Report 10314571 (Version 2)
Quarter: 2014Q3

REPORT INFORMATION
  Report Type: Spontaneous
  Country: FR (occurrence: FR)
  Receive Date: 20140718
  Receipt Date: 20140718
  Transmission Date: 20150326
  Serious: No
  Sender: FDA-Public Use
  Company Number: FR-ASTRAZENECA-2014SE26779

PATIENT
  Sex: Female

DRUGS (1)
  1. XEROQUEL [Suspect]
     Active Substance: QUETIAPINE FUMARATE
     Route: 048

REACTIONS (1)
  - Disease recurrence [Not Recovered/Not Resolved]
